FAERS Safety Report 4734774-7 (Version None)
Quarter: 2005Q3

REPORT INFORMATION
  Report Type: 
  Country: None (occurrence: None)
  Receive Date: 20050804
  Receipt Date: 20050727
  Transmission Date: 20060218
  Serious: Yes (Other)
  Sender: FDA-Public Use
  Company Number: GB-GLAXOSMITHKLINE-B0389007A

PATIENT
  Age: 45 Year
  Sex: Female
  Weight: 60 kg

DRUGS (3)
  1. ZYBAN [Suspect]
     Indication: SMOKING CESSATION THERAPY
     Route: 048
     Dates: start: 20041120, end: 20041124
  2. ATORVASTATIN CALCIUM [Concomitant]
     Indication: BLOOD CHOLESTEROL INCREASED
     Dosage: 20MG PER DAY
     Route: 048
     Dates: start: 20050101
  3. GAVISCON [Concomitant]
     Route: 048
     Dates: start: 20010601

REACTIONS (2)
  - MENORRHAGIA [None]
  - RASH [None]
